FAERS Safety Report 12236527 (Version 2)
Quarter: 2016Q2

REPORT INFORMATION
  Report Type: Report from Study
  Country: BR (occurrence: BR)
  Receive Date: 20160404
  Receipt Date: 20160615
  Transmission Date: 20160815
  Serious: Yes (Hospitalization, Other)
  Sender: FDA-Public Use
  Company Number: BR-ROCHE-1487741

PATIENT
  Age: 38 Year
  Sex: Male
  Weight: 131 kg

DRUGS (10)
  1. LOSARTAN. [Concomitant]
     Active Substance: LOSARTAN
     Route: 065
  2. NAPRIX [Concomitant]
     Active Substance: RAMIPRIL
  3. CARVEDILOL. [Concomitant]
     Active Substance: CARVEDILOL
     Indication: CARDIAC DISORDER
     Route: 065
  4. PREDNISOLONE. [Concomitant]
     Active Substance: PREDNISOLONE
  5. OMEPRAZOLE. [Concomitant]
     Active Substance: OMEPRAZOLE
  6. LASIX [Concomitant]
     Active Substance: FUROSEMIDE
  7. OXCARBAZEPINE. [Concomitant]
     Active Substance: OXCARBAZEPINE
     Route: 065
  8. MABTHERA [Suspect]
     Active Substance: RITUXIMAB
     Indication: RHEUMATOID ARTHRITIS
     Dosage: MOST RECENT DOSE ON 30/APR/2014?MOST RECENT DOSE ON 04/AUG/2015
     Route: 042
     Dates: start: 20140411, end: 20160524
  9. ADDERA [Concomitant]
     Active Substance: CHOLECALCIFEROL
     Route: 065
  10. FUROSEMIDE. [Concomitant]
     Active Substance: FUROSEMIDE
     Route: 065

REACTIONS (19)
  - Obesity [Not Recovered/Not Resolved]
  - Influenza [Recovering/Resolving]
  - Pain [Not Recovered/Not Resolved]
  - Hypertension [Unknown]
  - Immunodeficiency [Unknown]
  - Proteinuria [Unknown]
  - Influenza [Unknown]
  - Cholelithiasis [Unknown]
  - Hernia [Not Recovered/Not Resolved]
  - Malaise [Unknown]
  - Anaemia [Unknown]
  - Rhinitis [Recovering/Resolving]
  - Renal impairment [Not Recovered/Not Resolved]
  - Sneezing [Recovering/Resolving]
  - Fatigue [Unknown]
  - Cholecystitis [Unknown]
  - Wound dehiscence [Unknown]
  - Nephritis [Unknown]
  - Renal necrosis [Unknown]

NARRATIVE: CASE EVENT DATE: 20160610
